FAERS Safety Report 5677326-7 (Version None)
Quarter: 2008Q1

REPORT INFORMATION
  Report Type: 
  Country: None (occurrence: None)
  Receive Date: 20080318
  Receipt Date: 20080227
  Transmission Date: 20080703
  Serious: Yes (Death)
  Sender: FDA-Public Use
  Company Number: MEDI-0006518

PATIENT
  Age: 7 Month
  Sex: Male
  Weight: 4 kg

DRUGS (1)
  1. SYNAGIS [Suspect]
     Indication: ANTIVIRAL PROPHYLAXIS
     Dosage: INTRAMUSCULAR
     Route: 030
     Dates: start: 20071010, end: 20071114

REACTIONS (4)
  - APNOEIC ATTACK [None]
  - NASAL CONGESTION [None]
  - RALES [None]
  - RESPIRATORY FAILURE [None]
